FAERS Safety Report 6093202-2 (Version None)
Quarter: 2009Q1

REPORT INFORMATION
  Report Type: 
  Country: None (occurrence: None)
  Receive Date: 20090226
  Receipt Date: 20090216
  Transmission Date: 20090719
  Serious: Yes (Other)
  Sender: FDA-Public Use
  Company Number: GB-PFIZER INC-2009171220

PATIENT

DRUGS (2)
  1. LYRICA [Suspect]
     Indication: NEURALGIA
     Route: 048
  2. OPIOIDS [Concomitant]

REACTIONS (4)
  - ABNORMAL DREAMS [None]
  - CONFUSIONAL STATE [None]
  - NERVOUS SYSTEM DISORDER [None]
  - SEPSIS [None]
